FAERS Safety Report 16165639 (Version 2)
Quarter: 2019Q2

REPORT INFORMATION
  Report Type: Spontaneous
  Country: NL (occurrence: NL)
  Receive Date: 20190405
  Receipt Date: 20190428
  Transmission Date: 20190711
  Serious: Yes (Other)
  Sender: FDA-Public Use
  Company Number: PHHY2019NL077438

PATIENT
  Age: 75 Year
  Sex: Male

DRUGS (4)
  1. PEGINTERFERON ALFA-2A. [Concomitant]
     Active Substance: PEGINTERFERON ALFA-2A
     Indication: PRODUCT USED FOR UNKNOWN INDICATION
     Dosage: UNK (RECEIVED FOR 3-6 MONTHS)
     Route: 065
  2. FLUDARABINE [Suspect]
     Active Substance: FLUDARABINE PHOSPHATE
     Indication: MANTLE CELL LYMPHOMA
     Dosage: (RECEIVED FOR 3-6 MONTHS)
     Route: 065
  3. RITUXIMAB. [Suspect]
     Active Substance: RITUXIMAB
     Indication: MANTLE CELL LYMPHOMA
     Dosage: UNK (RECEIVED FOR 3-6 MONTHS)
     Route: 065
  4. CYCLOPHOSPHAMIDE. [Suspect]
     Active Substance: CYCLOPHOSPHAMIDE
     Indication: MANTLE CELL LYMPHOMA
     Dosage: UNK (RECEIVED FOR 3-6 MONTHS)
     Route: 065

REACTIONS (2)
  - Anaplastic large cell lymphoma T- and null-cell types stage IV [Unknown]
  - Product use in unapproved indication [Unknown]
